FAERS Safety Report 19799157 (Version 17)
Quarter: 2024Q3

REPORT INFORMATION
  Report Type: Report from Study
  Country: DE (occurrence: DE)
  Receive Date: 20210907
  Receipt Date: 20240708
  Transmission Date: 20241017
  Serious: Yes (Other)
  Sender: MYLAN
  Company Number: DE-002147023-NVSC2019DE081732

PATIENT
  Sex: Female
  Weight: 100.8 kg

DRUGS (10)
  1. LETROZOLE [Suspect]
     Active Substance: LETROZOLE
     Indication: Breast cancer metastatic
     Dosage: 2.5 MILLIGRAM, QD (DAILY DOSE)
     Route: 048
     Dates: start: 20190605
  2. LETROZOLE [Suspect]
     Active Substance: LETROZOLE
     Indication: Hormone receptor positive HER2 negative breast cancer
  3. KISQALI [Suspect]
     Active Substance: RIBOCICLIB
     Indication: Breast cancer metastatic
     Dosage: 600 MILLIGRAM, QD (SCHEME 21 DAYS INTAKE, THEN 7 DAYS PAUSE)
     Route: 048
     Dates: start: 20190605, end: 20200407
  4. KISQALI [Suspect]
     Active Substance: RIBOCICLIB
     Indication: Hormone receptor positive HER2 negative breast cancer
     Dosage: 600 MILLIGRAM, QD  (SCHEME 21 DAYS INTAKE, THEN 7 DAYS PAUSE)
     Route: 048
     Dates: start: 20200415, end: 20211026
  5. KISQALI [Suspect]
     Active Substance: RIBOCICLIB
     Dosage: 600 MILLIGRAM, QD  (SCHEME 21 DAYS INTAKE, THEN 7 DAYS PAUSE)
     Route: 048
     Dates: start: 20211102, end: 20211227
  6. KISQALI [Suspect]
     Active Substance: RIBOCICLIB
     Dosage: 600 MILLIGRAM, QD (SCHEME 21 DAYS INTAKE, THEN 7 DAYS PAUSE)
     Route: 048
     Dates: start: 20211229, end: 20221227
  7. KISQALI [Suspect]
     Active Substance: RIBOCICLIB
     Dosage: 600 MILLIGRAM, QD (SCHEME 21 DAYS INTAKE, THEN 7 DAYS PAUSE)
     Route: 048
     Dates: start: 20230104, end: 20230131
  8. KISQALI [Suspect]
     Active Substance: RIBOCICLIB
     Dosage: 600 MILLIGRAM, QD  (SCHEME 21 DAYS INTAKE, THEN 7 DAYS PAUSE)
     Route: 048
     Dates: start: 20230208, end: 20230725
  9. KISQALI [Suspect]
     Active Substance: RIBOCICLIB
     Dosage: 600 MILLIGRAM, QD  (SCHEME 21 DAYS INTAKE, THEN 7 DAYS PAUSE)
     Route: 048
     Dates: start: 20230802, end: 20231017
  10. KISQALI [Suspect]
     Active Substance: RIBOCICLIB
     Dosage: 600 MILLIGRAM, QD (SCHEME 21 DAYS INTAKE, THEN 7 DAYS PAUSE)
     Route: 048
     Dates: start: 20231102

REACTIONS (6)
  - Pneumonia [Recovered/Resolved]
  - Thrombocytopenia [Not Recovered/Not Resolved]
  - Neutropenia [Recovering/Resolving]
  - Leukopenia [Not Recovered/Not Resolved]
  - Lymphoedema [Not Recovered/Not Resolved]
  - Arthralgia [Not Recovered/Not Resolved]

NARRATIVE: CASE EVENT DATE: 20191202
